FAERS Safety Report 7058556-9 (Version None)
Quarter: 2010Q4

REPORT INFORMATION
  Report Type: 
  Country: None (occurrence: None)
  Receive Date: 20101022
  Receipt Date: 20101015
  Transmission Date: 20110411
  Serious: Yes (Hospitalization)
  Sender: FDA-Public Use
  Company Number: A0810472A

PATIENT
  Age: 57 Year
  Sex: Male
  Weight: 127.3 kg

DRUGS (10)
  1. AVANDIA [Suspect]
     Dosage: 4MG PER DAY
     Route: 048
     Dates: start: 20050126, end: 20070701
  2. AMARYL [Concomitant]
  3. VICODIN [Concomitant]
  4. CATAPRES [Concomitant]
  5. LOPRESSOR [Concomitant]
  6. ZOCOR [Concomitant]
  7. COMBIVENT [Concomitant]
  8. HYDRODIURIL [Concomitant]
  9. DEPAKOTE [Concomitant]
  10. ZESTRIL [Concomitant]

REACTIONS (1)
  - CEREBROVASCULAR ACCIDENT [None]
